FAERS Safety Report 6733501-1 (Version None)
Quarter: 2010Q2

REPORT INFORMATION
  Report Type: 
  Country: None (occurrence: None)
  Receive Date: 20100520
  Receipt Date: 20100517
  Transmission Date: 20101027
  Serious: Yes (Death, Hospitalization)
  Sender: FDA-Public Use
  Company Number: PHHY2010CA12867

PATIENT
  Sex: Female

DRUGS (1)
  1. ACLASTA [Suspect]
     Indication: OSTEOPOROSIS
     Dosage: 5 MG
     Route: 042
     Dates: start: 20090126

REACTIONS (6)
  - DEATH [None]
  - FALL [None]
  - MYOCARDIAL INFARCTION [None]
  - PNEUMONIA [None]
  - RIB FRACTURE [None]
  - UPPER LIMB FRACTURE [None]
